FAERS Safety Report 12424635 (Version 4)
Quarter: 2016Q3

REPORT INFORMATION
  Report Type: Report from Study
  Country: IE (occurrence: IE)
  Receive Date: 20160601
  Receipt Date: 20160902
  Transmission Date: 20161109
  Serious: Yes (Other)
  Sender: FDA-Public Use
  Company Number: IE-BAYER-2016-098875

PATIENT
  Age: 68 Year
  Sex: Male

DRUGS (3)
  1. INSULIN [Concomitant]
     Active Substance: INSULIN NOS
     Indication: TYPE 2 DIABETES MELLITUS
  2. NEXAVAR [Suspect]
     Active Substance: SORAFENIB
     Indication: HEPATOCELLULAR CARCINOMA
     Dosage: 200 MG, BID
     Route: 048
     Dates: start: 20160511, end: 20160521
  3. NEXAVAR [Suspect]
     Active Substance: SORAFENIB
     Indication: HEPATIC CANCER

REACTIONS (16)
  - Flatulence [None]
  - Abdominal pain [None]
  - Infection [None]
  - Gastrooesophageal reflux disease [None]
  - Dizziness [None]
  - Nausea [None]
  - Decreased appetite [None]
  - Blood pressure increased [None]
  - Dysphagia [None]
  - Aspiration [None]
  - Disorientation [None]
  - Dysarthria [None]
  - Malaise [None]
  - Dyspnoea [None]
  - Blood glucose decreased [None]
  - Oesophageal food impaction [None]

NARRATIVE: CASE EVENT DATE: 201605
